FAERS Safety Report 16962388 (Version 1)
Quarter: 2019Q4

REPORT INFORMATION
  Report Type: Spontaneous
  Country: US (occurrence: US)
  Receive Date: 20191025
  Receipt Date: 20191025
  Transmission Date: 20200122
  Serious: Yes (Death, Other)
  Sender: FDA-Public Use
  Company Number: US-PFIZER INC-2019458869

PATIENT
  Age: 60 Year
  Sex: Male
  Weight: 61.23 kg

DRUGS (2)
  1. RAPAMUNE [Suspect]
     Active Substance: SIROLIMUS
     Indication: LIVER TRANSPLANT
     Dosage: 0.5 MG, 1X/DAY
     Route: 048
     Dates: end: 201908
  2. RAPAMUNE [Suspect]
     Active Substance: SIROLIMUS
     Dosage: 3 DF, DAILY

REACTIONS (8)
  - Infection [Fatal]
  - Contusion [Unknown]
  - Drug level increased [Unknown]
  - Off label use [Unknown]
  - Decubitus ulcer [Unknown]
  - Product use in unapproved indication [Unknown]
  - Sepsis [Fatal]
  - Coma [Unknown]

NARRATIVE: CASE EVENT DATE: 20190809
